FAERS Safety Report 12716942 (Version 1)
Quarter: 2016Q3

REPORT INFORMATION
  Report Type: Spontaneous
  Country: CH (occurrence: CH)
  Receive Date: 20160906
  Receipt Date: 20160906
  Transmission Date: 20161109
  Serious: Yes (Hospitalization)
  Sender: FDA-Public Use
  Company Number: CH-MEDA-2016080110

PATIENT
  Age: 96 Year
  Sex: Female

DRUGS (6)
  1. ASS CARDIO [Suspect]
     Active Substance: ASPIRIN
     Dates: end: 20160728
  2. AMIODARON-MEPHA [Suspect]
     Active Substance: AMIODARONE
  3. SODIUM POLYSTYRENE SULFONATE. [Concomitant]
     Active Substance: SODIUM POLYSTYRENE SULFONATE
     Dates: end: 20160731
  4. CIPRALEX [Suspect]
     Active Substance: ESCITALOPRAM OXALATE
     Dates: end: 20160731
  5. BELOC ZOK [Suspect]
     Active Substance: METOPROLOL SUCCINATE
     Dates: end: 20160731
  6. TOREM [Suspect]
     Active Substance: TORSEMIDE
     Dates: end: 20160731

REACTIONS (1)
  - Fall [Not Recovered/Not Resolved]

NARRATIVE: CASE EVENT DATE: 20160728
